FAERS Safety Report 4386734-6 (Version None)
Quarter: 2004Q2

REPORT INFORMATION
  Report Type: 
  Country: None (occurrence: None)
  Receive Date: 20040629
  Receipt Date: 20040621
  Transmission Date: 20050107
  Serious: Yes (Other)
  Sender: FDA-Public Use
  Company Number: PT-MERCK-0406PRT00015

PATIENT
  Age: 59 Year
  Sex: Female

DRUGS (1)
  1. FOSAMAX [Suspect]
     Route: 048
     Dates: start: 20040401

REACTIONS (5)
  - CHILLS [None]
  - INFLUENZA LIKE ILLNESS [None]
  - MYALGIA [None]
  - NASAL CONGESTION [None]
  - PYREXIA [None]
